FAERS Safety Report 9033142 (Version 1)
Quarter: 2013Q1

REPORT INFORMATION
  Report Type: Spontaneous
  Country: JP (occurrence: JP)
  Receive Date: 20130128
  Receipt Date: 20130128
  Transmission Date: 20140127
  Serious: Yes (Hospitalization)
  Sender: FDA-Public Use
  Company Number: JP-PFIZER INC-2013030568

PATIENT
  Age: 42 Year
  Sex: Female
  Weight: 38 kg

DRUGS (1)
  1. SPIRONOLACTONE [Suspect]
     Indication: GITELMAN^S SYNDROME

REACTIONS (2)
  - Metabolic alkalosis [Recovered/Resolved]
  - Tetany [Recovered/Resolved]
